FAERS Safety Report 9991182 (Version 1)
Quarter: 2014Q1

REPORT INFORMATION
  Report Type: Report from Study
  Country: US (occurrence: US)
  Receive Date: 20140310
  Receipt Date: 20140310
  Transmission Date: 20141002
  Serious: No
  Sender: FDA-Public Use
  Company Number: US-ABBVIE-13P-163-1129374-00

PATIENT
  Sex: Female

DRUGS (8)
  1. HUMIRA [Suspect]
     Indication: RHEUMATOID ARTHRITIS
  2. LYRICA [Concomitant]
     Indication: RHEUMATOID ARTHRITIS
     Route: 048
  3. ARAVA [Concomitant]
     Indication: RHEUMATOID ARTHRITIS
  4. HYDROCODONE [Concomitant]
     Indication: PAIN
     Dosage: OR AS NEEDED
  5. DIOVAN [Concomitant]
     Indication: BLOOD PRESSURE MANAGEMENT
     Dosage: DAILY
  6. UNKNOWN MEDICATION [Concomitant]
     Indication: BLOOD PRESSURE MANAGEMENT
  7. UNKNOWN MEDICATION [Concomitant]
     Indication: HYPOTHYROIDISM
     Dosage: DAILY
     Route: 048
  8. PREDNISONE [Concomitant]
     Indication: PRODUCT USED FOR UNKNOWN INDICATION

REACTIONS (4)
  - Blood triglycerides increased [Not Recovered/Not Resolved]
  - Blood cholesterol increased [Not Recovered/Not Resolved]
  - Alopecia [Not Recovered/Not Resolved]
  - Drug ineffective [Not Recovered/Not Resolved]
